FAERS Safety Report 21938331 (Version 6)
Quarter: 2024Q2

REPORT INFORMATION
  Report Type: Spontaneous
  Country: US (occurrence: US)
  Receive Date: 20230201
  Receipt Date: 20240402
  Transmission Date: 20240715
  Serious: No
  Sender: FDA-Public Use
  Company Number: US-PFIZER INC-PV202300019568

PATIENT
  Age: 73 Year
  Sex: Female

DRUGS (1)
  1. IBRANCE [Suspect]
     Active Substance: PALBOCICLIB
     Dosage: ONCE A DAY TAKE 3/4 WEEK (ONCE A DAY FOR 21 DAYS THEN 7 DAYS OFF REPEAT CYCLE)
     Route: 048

REACTIONS (1)
  - Neoplasm progression [Unknown]
